FAERS Safety Report 8153225-6 (Version None)
Quarter: 2012Q1

REPORT INFORMATION
  Report Type: 
  Country: None (occurrence: None)
  Receive Date: 20120221
  Receipt Date: 20120213
  Transmission Date: 20120608
  Serious: Yes (Other)
  Sender: FDA-Public Use
  Company Number: US-UCBSA-051491

PATIENT
  Age: 24 Month
  Sex: Female

DRUGS (3)
  1. TOPAMAX [Concomitant]
     Route: 064
  2. KEPPRA [Suspect]
     Indication: EPILEPSY
     Dosage: UNKNOWN DOSE
     Route: 063
  3. KEPPRA [Suspect]
     Dosage: UNKNOWN DOSE
     Route: 064

REACTIONS (3)
  - GROWTH RETARDATION [None]
  - FOETAL EXPOSURE DURING PREGNANCY [None]
  - EXPOSURE DURING BREAST FEEDING [None]
